FAERS Safety Report 10014536 (Version 2)
Quarter: 2014Q1

REPORT INFORMATION
  Report Type: Spontaneous
  Country: JP (occurrence: JP)
  Receive Date: 20140317
  Receipt Date: 20140317
  Transmission Date: 20141002
  Serious: Yes (Hospitalization, Other)
  Sender: FDA-Public Use
  Company Number: JP-ASTELLAS-2012JP007688

PATIENT
  Age: 69 Year
  Sex: Male

DRUGS (6)
  1. PROGRAF [Suspect]
     Indication: PROPHYLAXIS AGAINST GRAFT VERSUS HOST DISEASE
     Dosage: 0.2 MG, UNK
     Route: 048
  2. PROGRAF [Suspect]
     Route: 048
  3. PROGRAF [Suspect]
     Route: 048
  4. METHOTREXATE [Concomitant]
     Indication: PROPHYLAXIS AGAINST GRAFT VERSUS HOST DISEASE
     Route: 065
  5. FLUDARABINE [Concomitant]
     Indication: BONE MARROW CONDITIONING REGIMEN
     Dosage: 25 MG/M2, UNKNOWN/D
     Route: 065
     Dates: start: 2010, end: 2010
  6. ALKERAN                            /00006401/ [Concomitant]
     Indication: BONE MARROW CONDITIONING REGIMEN
     Dosage: 70 MG/M2, UNKNOWN/D
     Route: 065
     Dates: start: 2010, end: 2010

REACTIONS (5)
  - Drug ineffective [Unknown]
  - Intentional drug misuse [Unknown]
  - Chronic graft versus host disease [Recovering/Resolving]
  - Graft versus host disease [Unknown]
  - Autoimmune pancreatitis [Unknown]
